FAERS Safety Report 14512947 (Version 1)
Quarter: 2018Q1

REPORT INFORMATION
  Report Type: Spontaneous
  Country: US (occurrence: US)
  Receive Date: 20180209
  Receipt Date: 20180209
  Transmission Date: 20180509
  Serious: No
  Sender: FDA-Public Use
  Company Number: US-ALLERGAN-1731278US

PATIENT
  Sex: Male

DRUGS (2)
  1. EPINASTINE. [Concomitant]
     Active Substance: EPINASTINE HYDROCHLORIDE
     Indication: PINGUECULA
     Dosage: UNK
     Route: 047
     Dates: start: 2007
  2. RESTASIS [Suspect]
     Active Substance: CYCLOSPORINE
     Indication: DRY EYE
     Dosage: 2 GTT, BID
     Route: 047
     Dates: end: 2017

REACTIONS (6)
  - Dry eye [Not Recovered/Not Resolved]
  - Eye pruritus [Unknown]
  - Fatigue [Not Recovered/Not Resolved]
  - Eye pain [Not Recovered/Not Resolved]
  - Lacrimation increased [Unknown]
  - Eye discharge [Recovering/Resolving]

NARRATIVE: CASE EVENT DATE: 201702
